FAERS Safety Report 24374927 (Version 1)
Quarter: 2024Q3

REPORT INFORMATION
  Report Type: Spontaneous
  Country: US (occurrence: US)
  Receive Date: 20240927
  Receipt Date: 20240927
  Transmission Date: 20241017
  Serious: Yes (Other)
  Sender: ELI LILLY AND CO
  Company Number: US-ELI_LILLY_AND_COMPANY-US202409014585

PATIENT
  Age: 68 Year
  Sex: Female

DRUGS (1)
  1. TALTZ [Suspect]
     Active Substance: IXEKIZUMAB
     Indication: Psoriatic arthropathy
     Dosage: 80 MG, OTHER (TWICE A MONTH INSTEAD OF ONCE A MONTH )
     Route: 065
     Dates: start: 2018

REACTIONS (3)
  - Colonic abscess [Unknown]
  - Off label use [Unknown]
  - Psoriatic arthropathy [Unknown]
